FAERS Safety Report 26189985 (Version 1)
Quarter: 2025Q4

REPORT INFORMATION
  Report Type: Spontaneous
  Country: EU (occurrence: EU)
  Receive Date: 20251223
  Receipt Date: 20251223
  Transmission Date: 20260117
  Serious: Yes (Hospitalization, Other)
  Sender: BAXTER
  Company Number: None

PATIENT
  Age: 72 Year
  Sex: Female

DRUGS (8)
  1. IFOSFAMIDE [Suspect]
     Active Substance: IFOSFAMIDE
     Indication: Extraskeletal osteosarcoma
     Dosage: 3000 MG/M? X 3 DAYS EVERY 21 DAYS
     Route: 042
     Dates: start: 20250908, end: 20250910
  2. PANTOPRAZOLE [Concomitant]
     Active Substance: PANTOPRAZOLE
     Dosage: 40 MG, NUMBER OF UNITS IN THE INTERVAL: 24 HOURS
     Route: 048
  3. ZOLPIDEM [Concomitant]
     Active Substance: ZOLPIDEM TARTRATE
     Dosage: 10 MG AS NEEDED
     Route: 048
  4. NALOXONE HYDROCHLORIDE\OXYCODONE HYDROCHLORIDE [Concomitant]
     Active Substance: NALOXONE HYDROCHLORIDE\OXYCODONE HYDROCHLORIDE
     Dosage: 5 MG TWICE A DAY
     Route: 048
  5. ENOXAPARIN [Concomitant]
     Active Substance: ENOXAPARIN
     Dosage: 4000 IU TWICE A DAY
     Route: 058
  6. ERYTHROPOIETIN [Concomitant]
     Active Substance: ERYTHROPOIETIN
     Dosage: 40000 IU ONCE A WEEK
     Route: 065
  7. EPIRUBICIN [Concomitant]
     Active Substance: EPIRUBICIN
     Dosage: 35 MG/M? X 3 DAYS
     Route: 042
     Dates: start: 20250908, end: 20250910
  8. PEGFILGRASTIM [Concomitant]
     Active Substance: PEGFILGRASTIM
     Dosage: 1 DOSAGE FORM 1 VIAL 24-48 HOURS AFTER THE END OF CHEMOTHERAPY
     Route: 058

REACTIONS (3)
  - Epilepsy [Recovering/Resolving]
  - Pancytopenia [Not Recovered/Not Resolved]
  - Diarrhoea [Recovering/Resolving]

NARRATIVE: CASE EVENT DATE: 20250911
